APPROVED DRUG PRODUCT: HYDROCODONE BITARTRATE AND ACETAMINOPHEN
Active Ingredient: ACETAMINOPHEN; HYDROCODONE BITARTRATE
Strength: 650MG;10MG
Dosage Form/Route: TABLET;ORAL
Application: A081223 | Product #001
Applicant: MIKART LLC
Approved: May 29, 1992 | RLD: No | RS: No | Type: DISCN